FAERS Safety Report 5747535-7 (Version None)
Quarter: 2008Q2

REPORT INFORMATION
  Report Type: 
  Country: None (occurrence: None)
  Receive Date: 20080523
  Receipt Date: 20080520
  Transmission Date: 20081010
  Serious: Yes (Hospitalization)
  Sender: FDA-Public Use
  Company Number: JP-SP-2008-00548

PATIENT
  Age: 73 Year
  Sex: Male

DRUGS (4)
  1. IMMUCYST [Suspect]
     Indication: CARCINOMA IN SITU OF BLADDER
     Route: 043
     Dates: start: 20051006, end: 20051026
  2. IMMUCYST [Suspect]
     Route: 043
     Dates: start: 20051006, end: 20051026
  3. ISONIAZID [Concomitant]
     Dates: start: 20051019, end: 20051026
  4. LOXOPROFEN SODIUM [Concomitant]
     Indication: DYSURIA
     Dosage: 3 TABLETS DAILY
     Route: 048
     Dates: start: 20051019, end: 20051026

REACTIONS (2)
  - DYSURIA [None]
  - HAEMATURIA [None]
